FAERS Safety Report 12295727 (Version 2)
Quarter: 2016Q4

REPORT INFORMATION
  Report Type: Spontaneous
  Country: JP (occurrence: JP)
  Receive Date: 20160422
  Receipt Date: 20161007
  Transmission Date: 20170207
  Serious: Yes (Death, Hospitalization)
  Sender: FDA-Public Use
  Company Number: JP-BAYER-2016-070299

PATIENT
  Age: 57 Year
  Sex: Female
  Weight: 62.5 kg

DRUGS (9)
  1. STIVARGA [Suspect]
     Active Substance: REGORAFENIB
     Indication: RECTAL CANCER
     Dosage: 80 MG, QD ON FOR 3WEEKS AND OFF FOR 1 WEEK
     Route: 048
     Dates: start: 20160217, end: 20160301
  2. STIVARGA [Suspect]
     Active Substance: REGORAFENIB
     Indication: RECTAL CANCER
     Dosage: 120 MG, QD ON FOR 3WEEKS AND OFF FOR 1 WEEK
     Route: 048
     Dates: start: 20160302, end: 20160308
  3. CODEINE PHOSPHATE [Concomitant]
     Active Substance: CODEINE PHOSPHATE
     Dosage: 20 MG, QD
     Route: 048
     Dates: start: 20160325, end: 20160414
  4. BARACLUDE [Concomitant]
     Active Substance: ENTECAVIR
     Dosage: 0.5 MG, QD
     Route: 048
  5. CLEANAL [Concomitant]
     Active Substance: FUDOSTEINE
     Dosage: DAILY DOSE 1200 MG
     Route: 048
     Dates: start: 20160330, end: 20160414
  6. MEDICON [Concomitant]
     Active Substance: DEXTROMETHORPHAN HYDROBROMIDE
     Dosage: DAILY DOSE 45 MG
     Route: 048
     Dates: start: 20160324, end: 20160414
  7. LOXOPROFEN SODIUM [Concomitant]
     Active Substance: LOXOPROFEN SODIUM
     Dosage: DAILY DOSE 3 DF
     Route: 048
     Dates: start: 20160330, end: 20160414
  8. BAKUMONDOUTO [Concomitant]
     Active Substance: HERBALS
     Dosage: DAILY DOSE 3 DF
     Route: 048
     Dates: start: 20160404, end: 20160414
  9. STIVARGA [Suspect]
     Active Substance: REGORAFENIB
     Indication: RECTAL CANCER
     Dosage: 80 MG, QD ON FOR 3WEEKS AND OFF FOR 1 WEEK
     Route: 048
     Dates: start: 20160328, end: 20160408

REACTIONS (4)
  - Pneumonia [Unknown]
  - Rectal cancer [Fatal]
  - Disseminated intravascular coagulation [Recovering/Resolving]
  - Hypertension [Recovering/Resolving]

NARRATIVE: CASE EVENT DATE: 2016
